FAERS Safety Report 9946058 (Version 1)
Quarter: 2014Q1

REPORT INFORMATION
  Report Type: Spontaneous
  Country: US (occurrence: US)
  Receive Date: 20140303
  Receipt Date: 20140303
  Transmission Date: 20141002
  Serious: Yes (Hospitalization)
  Sender: FDA-Public Use
  Company Number: US-AMGEN-USASP2013071866

PATIENT
  Age: 64 Year
  Sex: Male
  Weight: 102 kg

DRUGS (29)
  1. ENBREL [Suspect]
     Indication: RHEUMATOID ARTHRITIS
     Dosage: 50 MG, QWK
     Route: 058
  2. HUMIRA [Concomitant]
     Dosage: 40 MG/0.8
  3. MS CONTIN [Concomitant]
     Indication: PSORIATIC ARTHROPATHY
     Dosage: 15 MG, CR
  4. GABAPENTIN [Concomitant]
     Dosage: 100 MG, UNK
  5. SPIRIVA HANDIHALER [Concomitant]
     Dosage: UNK
  6. ATENOLOL [Concomitant]
     Dosage: 25 MG, UNK
  7. POLYETHYLENE GLYCOL 3350 [Concomitant]
     Dosage: POW, NF
  8. OMEPRAZOLE [Concomitant]
     Dosage: 20 MG, UNK
  9. ADVAIR HFA [Concomitant]
     Dosage: AER 230/21
  10. SYNTHROID [Concomitant]
     Dosage: 112 MUG, UNK
  11. LOVAZA [Concomitant]
     Dosage: 1 G, UNK
  12. CRESTOR [Concomitant]
     Dosage: 10 MG, UNK
  13. LOSARTAN POTASICO [Concomitant]
     Dosage: 25 MG, UNK
  14. VITAMIN B12                        /00056201/ [Concomitant]
     Dosage: 1000 MUG, UNK
  15. ZOLPIDEM [Concomitant]
     Dosage: 5 MG, UNK
  16. GLYBURIDE [Concomitant]
     Dosage: 2.5 MG, UNK
  17. FLONASE                            /00908302/ [Concomitant]
     Dosage: 0.05 %, SPR
  18. LUNESTA [Concomitant]
     Dosage: 1 MG, UNK
  19. FOLIC ACID [Concomitant]
     Dosage: UNK
  20. PLAQUENIL                          /00072602/ [Concomitant]
     Dosage: 200 MG, UNK
  21. MIRTAZAPINE [Concomitant]
     Dosage: 30 MG, UNK
  22. DALIRESP [Concomitant]
     Dosage: 500 MUG, UNK
  23. SINGULAIR [Concomitant]
     Dosage: 5 MG, CHW
  24. CYMBALTA [Concomitant]
     Dosage: 30 MG, UNK
  25. DIAZEPAM [Concomitant]
     Dosage: 2 MG, UNK
  26. AMOXICILLIN [Concomitant]
     Dosage: 500 MG, UNK
  27. CENTRUM                            /02217401/ [Concomitant]
     Dosage: UNK
  28. BABY ASPIRIN [Concomitant]
     Dosage: 81 MG, CHW
  29. VITAMIN D                          /00107901/ [Concomitant]
     Dosage: 400 UNIT, UNK

REACTIONS (2)
  - Cellulitis staphylococcal [Unknown]
  - Drug ineffective [Unknown]
